FAERS Safety Report 16811902 (Version 2)
Quarter: 2020Q4

REPORT INFORMATION
  Report Type: Report from Study
  Country: BR (occurrence: BR)
  Receive Date: 20190916
  Receipt Date: 20201026
  Transmission Date: 20210113
  Serious: Yes (Other)
  Sender: FDA-Public Use
  Company Number: BR-VIIV HEALTHCARE LIMITED-BR2019GSK164156

PATIENT
  Sex: Male

DRUGS (4)
  1. DOLUTEGRAVIR [Suspect]
     Active Substance: DOLUTEGRAVIR
     Indication: HIV INFECTION
  2. AURANOFIN [Concomitant]
     Active Substance: AURANOFIN
  3. NICOTINAMIDE [Concomitant]
     Active Substance: NIACINAMIDE
  4. MARAVIROC [Concomitant]
     Active Substance: MARAVIROC
     Indication: HIV INFECTION

REACTIONS (1)
  - Osteonecrosis [Recovered/Resolved]

NARRATIVE: CASE EVENT DATE: 20190522
